FAERS Safety Report 12135614 (Version 3)
Quarter: 2018Q1

REPORT INFORMATION
  Report Type: Spontaneous
  Country: US (occurrence: US)
  Receive Date: 20160302
  Receipt Date: 20180118
  Transmission Date: 20180508
  Serious: No
  Sender: FDA-Public Use
  Company Number: US-JNJFOC-20160212304

PATIENT
  Sex: Male

DRUGS (4)
  1. RISPERDAL CONSTA [Suspect]
     Active Substance: RISPERIDONE
     Indication: DRUG THERAPY
     Dosage: 25 MG AND 50 MG
     Route: 030
     Dates: start: 2008, end: 2010
  2. RISPERDAL [Suspect]
     Active Substance: RISPERIDONE
     Indication: DRUG THERAPY
     Dosage: 1 MG AND 2 MG
     Route: 048
     Dates: start: 2008, end: 2010
  3. INVEGA SUSTENNA [Suspect]
     Active Substance: PALIPERIDONE PALMITATE
     Indication: PRODUCT USED FOR UNKNOWN INDICATION
     Route: 030
  4. INVEGA [Suspect]
     Active Substance: PALIPERIDONE
     Indication: DRUG THERAPY
     Dosage: 3 MG AND 6 MG
     Route: 048
     Dates: start: 2007, end: 2008

REACTIONS (8)
  - Fatigue [Unknown]
  - Extrapyramidal disorder [Unknown]
  - Product use in unapproved indication [Unknown]
  - Off label use [Unknown]
  - Gynaecomastia [Unknown]
  - Somnolence [Unknown]
  - Depression [Unknown]
  - Abnormal weight gain [Unknown]

NARRATIVE: CASE EVENT DATE: 2007
